FAERS Safety Report 4859741-4 (Version None)
Quarter: 2005Q4

REPORT INFORMATION
  Report Type: 
  Country: None (occurrence: None)
  Receive Date: 20051215
  Receipt Date: 20051205
  Transmission Date: 20060501
  Serious: Yes (Other)
  Sender: FDA-Public Use
  Company Number: CHPA2000US03716

PATIENT
  Sex: Female

DRUGS (11)
  1. EX-LAX LAXATIVE (NCH) [Suspect]
     Indication: WEIGHT CONTROL
     Dosage: ORAL
     Route: 048
  2. DULCOLAX - UNKNOWN FORM (NCH) (BISACODYL) [Suspect]
     Indication: WEIGHT CONTROL
     Dosage: ORAL
     Route: 048
  3. DULCOLAX [Suspect]
     Indication: WEIGHT CONTROL
     Dosage: ORAL
     Route: 048
  4. FEEN-A-MINT (PHENOLPHTHALEIN) [Suspect]
     Indication: WEIGHT CONTROL
     Dosage: ORAL
     Route: 048
  5. SENOKOT /USA/ (SENNA, SENNA ALEXANDRINA) [Suspect]
     Indication: WEIGHT CONTROL
     Dosage: ORAL
     Route: 048
  6. FLEET LAXATIVE (BISACODYL) [Suspect]
     Indication: WEIGHT CONTROL
     Dosage: ORAL
     Route: 048
  7. NATURE'S REMEDY (CASCARA, RHAMNUS PURSHIANA) [Suspect]
     Indication: WEIGHT CONTROL
     Dosage: ORAL
     Route: 048
  8. CORRECTOL [Suspect]
     Indication: WEIGHT CONTROL
     Dosage: ORAL
     Route: 048
  9. TOPCARE  (TOPCARE) [Suspect]
     Indication: WEIGHT CONTROL
     Dosage: ORAL
     Route: 048
  10. FLEXERIL (CYCLOBENAZPRINE HYROCHLORIDE) [Concomitant]
  11. MECLIZINE [Concomitant]

REACTIONS (23)
  - ANXIETY [None]
  - ASTHENIA [None]
  - CARDIAC DISORDER [None]
  - CONSTIPATION [None]
  - DIVERTICULUM [None]
  - DIZZINESS [None]
  - DRUG DEPENDENCE [None]
  - ECONOMIC PROBLEM [None]
  - EMOTIONAL DISTRESS [None]
  - FAMILY STRESS [None]
  - FLANK PAIN [None]
  - GASTROINTESTINAL DISORDER [None]
  - HYPOAESTHESIA [None]
  - INGUINAL HERNIA [None]
  - INJURY [None]
  - MUSCLE TIGHTNESS [None]
  - NAUSEA [None]
  - NERVOUSNESS [None]
  - ODYNOPHAGIA [None]
  - PAIN [None]
  - PALLOR [None]
  - STRESS [None]
  - TENSION HEADACHE [None]
